FAERS Safety Report 8873869 (Version 2)
Quarter: 2012Q4

REPORT INFORMATION
  Report Type: 
  Country: US (occurrence: US)
  Receive Date: 20121030
  Receipt Date: 20121119
  Transmission Date: 20130627
  Serious: Yes (Hospitalization)
  Sender: FDA-Public Use
  Company Number: US-GILEAD-2012-0063632

PATIENT
  Sex: Female

DRUGS (4)
  1. LETAIRIS [Suspect]
     Indication: COR PULMONALE CHRONIC
     Dosage: 10 mg, QD
     Route: 048
     Dates: start: 20120329
  2. LETAIRIS [Suspect]
     Dates: start: 20120329
  3. TYVASO [Concomitant]
  4. REVATIO [Concomitant]

REACTIONS (2)
  - Fluid retention [Unknown]
  - Oedema peripheral [Unknown]
